FAERS Safety Report 24760690 (Version 2)
Quarter: 2025Q4

REPORT INFORMATION
  Report Type: Spontaneous
  Country: EU (occurrence: EU)
  Receive Date: 20241220
  Receipt Date: 20251028
  Transmission Date: 20260118
  Serious: Yes (Life-Threatening, Hospitalization)
  Sender: PFIZER
  Company Number: EU-Accord-459279

PATIENT
  Age: 20 Year
  Sex: Male

DRUGS (2)
  1. TRASTUZUMAB [Suspect]
     Active Substance: TRASTUZUMAB
     Indication: Oesophageal adenocarcinoma stage IV
     Dosage: 8 MG/KG, LOADING DOSE
  2. FLUOROURACIL [Suspect]
     Active Substance: FLUOROURACIL
     Indication: Oesophageal adenocarcinoma stage IV
     Dosage: UNK, CONTINUOUS INFUSION

REACTIONS (1)
  - Stress cardiomyopathy [Recovered/Resolved]
